FAERS Safety Report 24196688 (Version 1)
Quarter: 2024Q3

REPORT INFORMATION
  Report Type: Spontaneous
  Country: US (occurrence: US)
  Receive Date: 20240810
  Receipt Date: 20240810
  Transmission Date: 20241017
  Serious: No
  Sender: SANOFI AVENTIS
  Company Number: US-SA-SAC20240807000852

PATIENT
  Age: 6 Year
  Sex: Male
  Weight: 30.753 kg

DRUGS (1)
  1. DUPIXENT [Suspect]
     Active Substance: DUPILUMAB
     Dosage: 300 MG, Q4W
     Route: 058
     Dates: end: 2024

REACTIONS (1)
  - Hordeolum [Recovered/Resolved]

NARRATIVE: CASE EVENT DATE: 20230901
